FAERS Safety Report 18998778 (Version 1)
Quarter: 2021Q1

REPORT INFORMATION
  Report Type: Spontaneous
  Country: US (occurrence: US)
  Receive Date: 20210311
  Receipt Date: 20210311
  Transmission Date: 20210420
  Serious: No
  Sender: FDA-Public Use
  Company Number: US-GALDERMA-US2020047357

PATIENT
  Age: 45 Year
  Sex: Female

DRUGS (4)
  1. TRIAMCINOLONE CREAM [Concomitant]
     Active Substance: TRIAMCINOLONE
     Indication: PRODUCT USED FOR UNKNOWN INDICATION
     Route: 061
  2. VECTICAL [Suspect]
     Active Substance: CALCITRIOL
     Dosage: 3 MCG/G
     Dates: start: 20200924
  3. VECTICAL [Suspect]
     Active Substance: CALCITRIOL
     Indication: RASH
     Dosage: 3 MCG/G
     Route: 061
     Dates: start: 202010
  4. TACROLIMUS CREAM [Concomitant]
     Indication: PRODUCT USED FOR UNKNOWN INDICATION
     Route: 061

REACTIONS (6)
  - Feeling hot [Not Recovered/Not Resolved]
  - Product use in unapproved indication [Recovered/Resolved]
  - Intentional underdose [Recovered/Resolved]
  - Intentional product misuse [Recovered/Resolved]
  - Accidental exposure to product [Recovered/Resolved]
  - Vision blurred [Not Recovered/Not Resolved]

NARRATIVE: CASE EVENT DATE: 20200924
